APPROVED DRUG PRODUCT: DEXTROSE 5%, SODIUM CHLORIDE 0.33% AND POTASSIUM CHLORIDE 40MEQ IN PLASTIC CONTAINER
Active Ingredient: DEXTROSE; POTASSIUM CHLORIDE; SODIUM CHLORIDE
Strength: 5GM/100ML;300MG/100ML;330MG/100ML
Dosage Form/Route: INJECTABLE;INJECTION
Application: N018629 | Product #008 | TE Code: AP
Applicant: BAXTER HEALTHCARE CORP
Approved: Mar 23, 1982 | RLD: No | RS: No | Type: RX